FAERS Safety Report 15555761 (Version 1)
Quarter: 2018Q4

REPORT INFORMATION
  Report Type: Spontaneous
  Country: FR (occurrence: FR)
  Receive Date: 20181026
  Receipt Date: 20181026
  Transmission Date: 20190205
  Serious: Yes (Other)
  Sender: FDA-Public Use
  Company Number: FR-PROVELL PHARMACEUTICALS-2058084

PATIENT
  Age: 91 Year
  Sex: Female

DRUGS (3)
  1. EUTHYROX [Suspect]
     Active Substance: LEVOTHYROXINE SODIUM
     Dates: start: 201708
  2. EUTHYROX [Suspect]
     Active Substance: LEVOTHYROXINE SODIUM
     Indication: PRODUCT USED FOR UNKNOWN INDICATION
  3. EUTHYROX [Suspect]
     Active Substance: LEVOTHYROXINE SODIUM
     Dates: start: 201708

REACTIONS (41)
  - Marital problem [Recovering/Resolving]
  - Helplessness [Recovering/Resolving]
  - Thyroxine increased [None]
  - Mental impairment [Recovering/Resolving]
  - Arrhythmia [Recovering/Resolving]
  - Depression [Recovering/Resolving]
  - Feeling of despair [Recovering/Resolving]
  - Haematocrit decreased [None]
  - Alopecia [Recovered/Resolved]
  - Intentional self-injury [Recovering/Resolving]
  - Dysstasia [Recovering/Resolving]
  - Feeling of body temperature change [Recovering/Resolving]
  - Decreased interest [Recovering/Resolving]
  - C-reactive protein increased [None]
  - Troponin increased [None]
  - Supraventricular extrasystoles [Recovering/Resolving]
  - Blood pressure abnormal [Recovering/Resolving]
  - Social avoidant behaviour [Recovering/Resolving]
  - Decreased appetite [Recovering/Resolving]
  - Thyroxine decreased [None]
  - Hot flush [Recovering/Resolving]
  - Dry skin [Recovering/Resolving]
  - Loss of personal independence in daily activities [Recovering/Resolving]
  - Blood thyroid stimulating hormone increased [None]
  - Muscular weakness [Recovering/Resolving]
  - Temperature intolerance [Recovering/Resolving]
  - Fatigue [Recovering/Resolving]
  - Hypothyroidism [Recovering/Resolving]
  - Arthralgia [Recovering/Resolving]
  - Affective disorder [Recovering/Resolving]
  - Dyspnoea [Recovering/Resolving]
  - Red blood cell count decreased [None]
  - Serum ferritin decreased [None]
  - Memory impairment [Recovering/Resolving]
  - Anxiety [Recovering/Resolving]
  - Blood creatine phosphokinase decreased [None]
  - Irritability [Recovering/Resolving]
  - Asthenia [Recovering/Resolving]
  - Blood thyroid stimulating hormone decreased [None]
  - Cardiovascular disorder [Recovering/Resolving]
  - Palpitations [Recovering/Resolving]

NARRATIVE: CASE EVENT DATE: 201706
